FAERS Safety Report 7921776-2 (Version None)
Quarter: 2011Q4

REPORT INFORMATION
  Report Type: 
  Country: None (occurrence: None)
  Receive Date: 20111117
  Receipt Date: 20111111
  Transmission Date: 20120403
  Serious: Yes (Other)
  Sender: FDA-Public Use
  Company Number: JP-GLAXOSMITHKLINE-B0762462A

PATIENT
  Sex: Female

DRUGS (4)
  1. LAMICTAL [Suspect]
     Dosage: 50MG PER DAY
     Route: 048
     Dates: start: 20110914, end: 20110927
  2. LAMICTAL [Suspect]
     Dosage: 100MG PER DAY
     Route: 048
     Dates: start: 20110927, end: 20111003
  3. LAMICTAL [Suspect]
     Dosage: 200MG PER DAY
     Route: 048
     Dates: start: 20111004, end: 20111016
  4. LAMICTAL [Suspect]
     Indication: BORDERLINE PERSONALITY DISORDER
     Dosage: 25MG PER DAY
     Route: 048
     Dates: start: 20110823, end: 20110913

REACTIONS (4)
  - RASH [None]
  - CHEILITIS [None]
  - PYREXIA [None]
  - STOMATITIS [None]
